FAERS Safety Report 18262530 (Version 1)
Quarter: 2020Q3

REPORT INFORMATION
  Report Type: Spontaneous
  Country: US (occurrence: US)
  Receive Date: 20200506
  Receipt Date: 20200506
  Transmission Date: 20201103
  Serious: No
  Sender: FDA-Public Use
  Company Number: None

PATIENT
  Age: 5 Decade
  Sex: Female

DRUGS (2)
  1. DANOPREVIR. [Suspect]
     Active Substance: DANOPREVIR
     Indication: COVID-19
     Dosage: ?          OTHER DOSE:100/100MG;?
     Route: 048
     Dates: start: 2020
  2. RITONAVIR. [Suspect]
     Active Substance: RITONAVIR

REACTIONS (1)
  - Product use issue [None]
